FAERS Safety Report 4829881-4 (Version None)
Quarter: 2005Q4

REPORT INFORMATION
  Report Type: 
  Country: None (occurrence: None)
  Receive Date: 20051117
  Receipt Date: 20051110
  Transmission Date: 20060501
  Serious: Yes (Congenital Anomaly)
  Sender: FDA-Public Use
  Company Number: GB-ABBOTT-05P-167-0317180-00

PATIENT
  Sex: Male

DRUGS (1)
  1. EPILIM TABLETS [Suspect]
     Indication: DRUG EXPOSURE DURING PREGNANCY

REACTIONS (5)
  - DEVELOPMENTAL DELAY [None]
  - FOETAL VALPROATE SYNDROME [None]
  - LEARNING DISORDER [None]
  - SPEECH DISORDER [None]
  - UNEVALUABLE EVENT [None]
